FAERS Safety Report 8514153-7 (Version None)
Quarter: 2012Q3

REPORT INFORMATION
  Report Type: 
  Country: None (occurrence: None)
  Receive Date: 20120717
  Receipt Date: 20120705
  Transmission Date: 20120928
  Serious: Yes (Other)
  Sender: FDA-Public Use
  Company Number: US-RB-042114-12

PATIENT
  Age: 14 Year
  Sex: Female

DRUGS (2)
  1. MUCINEX DM [Suspect]
     Dosage: 14 TABLETS
     Route: 048
  2. MUCINEX DM [Suspect]
     Indication: INTENTIONAL OVERDOSE
     Dosage: 14 TABLETS
     Route: 048

REACTIONS (3)
  - INTENTIONAL OVERDOSE [None]
  - NO ADVERSE EVENT [None]
  - DRUG ABUSE [None]
